FAERS Safety Report 24003433 (Version 1)
Quarter: 2024Q2

REPORT INFORMATION
  Report Type: Spontaneous
  Country: CA (occurrence: CA)
  Receive Date: 20240624
  Receipt Date: 20240624
  Transmission Date: 20240716
  Serious: Yes (Hospitalization)
  Sender: FDA-Public Use
  Company Number: CA-ADVANZ PHARMA-202309007902

PATIENT
  Age: 78 Year
  Sex: Male

DRUGS (1)
  1. OCALIVA [Suspect]
     Active Substance: OBETICHOLIC ACID
     Indication: Primary biliary cholangitis
     Dosage: 5 MG, QD (OCALIVA)
     Route: 048
     Dates: start: 20230622

REACTIONS (6)
  - Benign prostatic hyperplasia [Recovering/Resolving]
  - Back injury [Unknown]
  - Renal pain [Unknown]
  - Prostatic disorder [Not Recovered/Not Resolved]
  - Gamma-glutamyltransferase increased [Unknown]
  - Pruritus [Not Recovered/Not Resolved]
